FAERS Safety Report 24130918 (Version 1)
Quarter: 2024Q3

REPORT INFORMATION
  Report Type: Report from Study
  Country: US (occurrence: None)
  Receive Date: 20240724
  Receipt Date: 20240724
  Transmission Date: 20241017
  Serious: Yes (Hospitalization, Other)
  Sender: ASTRAZENECA
  Company Number: 2023A126044

PATIENT
  Sex: Female

DRUGS (1)
  1. LYNPARZA [Suspect]
     Active Substance: OLAPARIB
     Indication: Breast cancer
     Route: 048
     Dates: start: 20230118

REACTIONS (6)
  - Eye irritation [Unknown]
  - Photophobia [Unknown]
  - Eyelid pain [Unknown]
  - Transient ischaemic attack [Unknown]
  - Eye infection [Unknown]
  - Insurance issue [Unknown]
